FAERS Safety Report 4330100-6 (Version None)
Quarter: 2004Q1

REPORT INFORMATION
  Report Type: 
  Country: None (occurrence: None)
  Receive Date: 20040329
  Receipt Date: 20040312
  Transmission Date: 20041129
  Serious: Yes (Hospitalization, Disabling, Other)
  Sender: FDA-Public Use
  Company Number: 200410051BFR

PATIENT
  Age: 53 Year
  Sex: Female
  Weight: 127 kg

DRUGS (11)
  1. STALTOR (CERIVASTATIN) [Suspect]
     Indication: HYPERCHOLESTEROLAEMIA
     Dosage: 0.3 MG, ONCE, ORAL
     Route: 048
     Dates: start: 20001129, end: 20010201
  2. GLUCOR (ACARBOSE) [Suspect]
     Indication: DIABETES MELLITUS NON-INSULIN-DEPENDENT
     Dosage: 50 MG, ORAL
     Route: 048
     Dates: start: 20001129
  3. CELEBREX [Concomitant]
  4. INNOHEP [Concomitant]
  5. HIRUCREME [Concomitant]
  6. MOPRAL [Concomitant]
  7. MEPRONIZINE [Concomitant]
  8. TRANXENE [Concomitant]
  9. DI-ANTALVIC [Concomitant]
  10. PROZAC [Concomitant]
  11. ART 50 [Concomitant]

REACTIONS (7)
  - CHRONIC HEPATITIS [None]
  - HEPATIC STEATOSIS [None]
  - HEPATOMEGALY [None]
  - MUSCLE CRAMP [None]
  - MYALGIA [None]
  - VISUAL ACUITY REDUCED [None]
  - VISUAL DISTURBANCE [None]
